FAERS Safety Report 5393211-2 (Version None)
Quarter: 2007Q3

REPORT INFORMATION
  Report Type: 
  Country: None (occurrence: None)
  Receive Date: 20070718
  Receipt Date: 20060809
  Transmission Date: 20080115
  Serious: Yes (Hospitalization, Other)
  Sender: FDA-Public Use
  Company Number: 2006072753

PATIENT
  Age: 50 Year
  Sex: Female
  Weight: 79.8331 kg

DRUGS (2)
  1. CELEBREX [Suspect]
     Indication: FOOT FRACTURE
     Dosage: (3 - 4/DAY)
     Dates: start: 19991201, end: 20010101
  2. CELEBREX [Suspect]
     Indication: TOE OPERATION
     Dosage: (3 - 4/DAY)
     Dates: start: 19991201, end: 20010101

REACTIONS (3)
  - COLITIS ISCHAEMIC [None]
  - DEPRESSION [None]
  - MYOCARDIAL INFARCTION [None]
